FAERS Safety Report 7491910-X (Version None)
Quarter: 2011Q1

REPORT INFORMATION
  Report Type: 
  Country: None (occurrence: None)
  Receive Date: 20110318
  Receipt Date: 20100818
  Transmission Date: 20110831
  Serious: Yes (Other)
  Sender: FDA-Public Use
  Company Number: 3-0810-64

PATIENT
  Sex: Female

DRUGS (1)
  1. DERMOTIC [Suspect]
     Dosage: TOPICAL
     Route: 061

REACTIONS (1)
  - NO ADVERSE EVENT [None]
